FAERS Safety Report 8365356-6 (Version None)
Quarter: 2012Q2

REPORT INFORMATION
  Report Type: 
  Country: None (occurrence: None)
  Receive Date: 20120516
  Receipt Date: 20120510
  Transmission Date: 20120825
  Serious: Yes (Death, Other)
  Sender: FDA-Public Use
  Company Number: FR-PFIZER INC-2012081385

PATIENT
  Age: 2 Year
  Sex: Male
  Weight: 12 kg

DRUGS (6)
  1. HYDROCORTISONE [Concomitant]
     Indication: HYPERADRENALISM
  2. GAVISCON [Concomitant]
     Indication: GASTROOESOPHAGEAL REFLUX DISEASE
  3. SOMATROPIN RDNA [Suspect]
     Indication: PRADER-WILLI SYNDROME
     Dosage: 0.3 MG, 1X/DAY
     Route: 058
     Dates: start: 20110903
  4. KEPPRA [Concomitant]
     Indication: EPILEPSY
  5. MOTILIUM [Concomitant]
     Indication: GASTROOESOPHAGEAL REFLUX DISEASE
  6. HYDROCORTISONE [Concomitant]
     Indication: RESPIRATORY DISORDER
     Dosage: 3 DF, UNK

REACTIONS (5)
  - CARDIAC ARREST [None]
  - CIRCULATORY COLLAPSE [None]
  - GASTROENTERITIS [None]
  - HYPOVOLAEMIC SHOCK [None]
  - DEHYDRATION [None]
